FAERS Safety Report 8555365-6 (Version None)
Quarter: 2012Q3

REPORT INFORMATION
  Report Type: 
  Country: None (occurrence: None)
  Receive Date: 20120731
  Receipt Date: 20111101
  Transmission Date: 20120928
  Serious: No
  Sender: FDA-Public Use
  Company Number: US-ASTRAZENECA-2011SE34282

PATIENT
  Age: 45 Year
  Sex: Female
  Weight: 134.7 kg

DRUGS (8)
  1. SEROQUEL [Suspect]
     Indication: ANXIETY
     Route: 048
     Dates: start: 20070101
  2. SEROQUEL [Suspect]
     Indication: DEPRESSION
     Route: 048
     Dates: start: 20070101
  3. CLONAZEPAM [Concomitant]
  4. CYMBALTA [Concomitant]
  5. SEROQUEL [Suspect]
     Indication: BIPOLAR DISORDER
     Route: 048
     Dates: start: 20070101
  6. SEROQUEL [Suspect]
     Indication: SLEEP DISORDER
     Route: 048
     Dates: start: 20070101
  7. OMEPRAZOLE [Concomitant]
  8. CELEBREX [Concomitant]

REACTIONS (7)
  - HUNGER [None]
  - INSOMNIA [None]
  - CRYING [None]
  - WEIGHT INCREASED [None]
  - OFF LABEL USE [None]
  - DRUG DOSE OMISSION [None]
  - PANIC ATTACK [None]
